FAERS Safety Report 5623279-7 (Version None)
Quarter: 2008Q1

REPORT INFORMATION
  Report Type: 
  Country: None (occurrence: None)
  Receive Date: 20080115
  Receipt Date: 20070528
  Transmission Date: 20080703
  Serious: Yes (Other)
  Sender: FDA-Public Use
  Company Number: 2007012804

PATIENT
  Age: 52 Year
  Sex: Female
  Weight: 57.2 kg

DRUGS (8)
  1. AROMASIN [Suspect]
     Indication: BREAST CANCER
     Dosage: 25 MG (25 MG,1 IN 1 D),ORAL
     Route: 048
     Dates: start: 20061001, end: 20070401
  2. SYNTHROID [Concomitant]
  3. LYRICA [Concomitant]
  4. RANITIDINE [Concomitant]
  5. ELAVIL [Concomitant]
  6. PROZAC [Concomitant]
  7. TUMS (CALCIUM CARBONATE) [Concomitant]
  8. SENNA (SENNA) [Concomitant]

REACTIONS (6)
  - AMNESIA [None]
  - ARTHRALGIA [None]
  - BREAST MASS [None]
  - INSOMNIA [None]
  - MYALGIA [None]
  - PAIN IN EXTREMITY [None]
